FAERS Safety Report 9746875 (Version 2)
Quarter: 2013Q4

REPORT INFORMATION
  Report Type: Spontaneous
  Country: DE (occurrence: DE)
  Receive Date: 20131211
  Receipt Date: 20131223
  Transmission Date: 20140711
  Serious: Yes (Hospitalization, Other)
  Sender: FDA-Public Use
  Company Number: DE-TEVA-449219GER

PATIENT
  Sex: 0

DRUGS (1)
  1. TRAMADOL [Suspect]

REACTIONS (1)
  - Drug-induced liver injury [Unknown]
